FAERS Safety Report 15371551 (Version 4)
Quarter: 2019Q1

REPORT INFORMATION
  Report Type: Spontaneous
  Country: JP (occurrence: JP)
  Receive Date: 20180911
  Receipt Date: 20190306
  Transmission Date: 20190417
  Serious: Yes (Other)
  Sender: FDA-Public Use
  Company Number: PHJP2018JP016106

PATIENT
  Age: 79 Year
  Sex: Male

DRUGS (7)
  1. COSENTYX [Suspect]
     Active Substance: SECUKINUMAB
     Dosage: 300 MG, UNK
     Route: 058
     Dates: start: 20180731, end: 20180731
  2. FLUCONAZOLE. [Suspect]
     Active Substance: FLUCONAZOLE
     Indication: OESOPHAGEAL CANDIDIASIS
     Dosage: 200 MG, QD
     Route: 048
     Dates: start: 20180829, end: 20180925
  3. AMVALO [Concomitant]
     Indication: HYPERTENSION
     Dosage: 1 DF, QD
     Route: 048
  4. MARDUOX [Concomitant]
     Active Substance: BETAMETHASONE BUTYRATE PROPIONATE\MAXACALCITOL
     Indication: PSORIASIS
     Dosage: 2.5 G, QD
     Route: 062
     Dates: start: 20161214
  5. TIGASON [Concomitant]
     Active Substance: ETRETINATE
     Indication: PSORIASIS
     Dosage: 10 MG, QD
     Route: 048
     Dates: start: 20170814, end: 20180718
  6. COSENTYX [Suspect]
     Active Substance: SECUKINUMAB
     Indication: PSORIASIS
     Dosage: 300 MG, QW
     Route: 058
     Dates: start: 20180605, end: 20180704
  7. FLUCONAZOLE. [Suspect]
     Active Substance: FLUCONAZOLE
     Indication: GASTROINTESTINAL CANDIDIASIS

REACTIONS (13)
  - Hiatus hernia [Not Recovered/Not Resolved]
  - Dysphagia [Unknown]
  - Pharyngeal erythema [Unknown]
  - Malaise [Unknown]
  - Sensation of foreign body [Unknown]
  - Oral candidiasis [Recovered/Resolved]
  - Pruritus generalised [Unknown]
  - Oesophageal ulcer [Unknown]
  - Coating in mouth [Unknown]
  - Decreased appetite [Unknown]
  - Gastrooesophageal reflux disease [Not Recovered/Not Resolved]
  - Oesophageal candidiasis [Recovered/Resolved]
  - Oropharyngeal candidiasis [Recovered/Resolved]

NARRATIVE: CASE EVENT DATE: 201807
